FAERS Safety Report 20819689 (Version 1)
Quarter: 2022Q2

REPORT INFORMATION
  Report Type: Spontaneous
  Country: US (occurrence: US)
  Receive Date: 20220512
  Receipt Date: 20220512
  Transmission Date: 20220721
  Serious: No
  Sender: FDA-Public Use
  Company Number: US-JNJFOC-20220514090

PATIENT
  Sex: Female

DRUGS (1)
  1. SPRAVATO [Suspect]
     Active Substance: ESKETAMINE
     Indication: Product used for unknown indication
     Route: 065

REACTIONS (7)
  - Hyperventilation [Unknown]
  - Cyanosis [Unknown]
  - Discomfort [Unknown]
  - Nasopharyngitis [Unknown]
  - Oxygen saturation decreased [Unknown]
  - Feeling hot [Unknown]
  - Tremor [Unknown]
